FAERS Safety Report 13464406 (Version 1)
Quarter: 2017Q2

REPORT INFORMATION
  Report Type: Spontaneous
  Country: US (occurrence: US)
  Receive Date: 20170420
  Receipt Date: 20170420
  Transmission Date: 20170830
  Serious: Yes (Other)
  Sender: FDA-Public Use
  Company Number: US-ROCHE-724608

PATIENT
  Age: 14 Year
  Sex: Female
  Weight: 72.6 kg

DRUGS (3)
  1. ACCUTANE [Suspect]
     Active Substance: ISOTRETINOIN
     Indication: ACNE
     Route: 048
  2. ACCUTANE [Suspect]
     Active Substance: ISOTRETINOIN
     Route: 048
  3. ACCUTANE [Suspect]
     Active Substance: ISOTRETINOIN
     Route: 048
     Dates: start: 19981013, end: 199906

REACTIONS (10)
  - Abdominal pain [Unknown]
  - Episcleritis [Unknown]
  - Rectal haemorrhage [Unknown]
  - Blood triglycerides increased [Unknown]
  - Nausea [Unknown]
  - Crohn^s disease [Unknown]
  - Depression [Unknown]
  - Iritis [Unknown]
  - Colitis ulcerative [Unknown]
  - Inflammatory bowel disease [Unknown]

NARRATIVE: CASE EVENT DATE: 19981110
